FAERS Safety Report 4552186-6 (Version None)
Quarter: 2004Q4

REPORT INFORMATION
  Report Type: 
  Country: None (occurrence: None)
  Receive Date: 20041217
  Receipt Date: 20040810
  Transmission Date: 20050328
  Serious: No
  Sender: FDA-Public Use
  Company Number: 2004-BP-06196BP

PATIENT
  Age: 72 Year
  Sex: Female
  Weight: 65.3 kg

DRUGS (2)
  1. SPIRIVA [Suspect]
     Indication: CHRONIC OBSTRUCTIVE AIRWAYS DISEASE
     Dosage: 18 MCG (18 MCG, 1 INH,OD),IH
     Dates: start: 20040601
  2. ALBUTEROL [Concomitant]

REACTIONS (1)
  - VISUAL DISTURBANCE [None]
